FAERS Safety Report 6339044-1 (Version None)
Quarter: 2009Q3

REPORT INFORMATION
  Report Type: 
  Country: None (occurrence: None)
  Receive Date: 20090903
  Receipt Date: 20090901
  Transmission Date: 20100115
  Serious: Yes (Other)
  Sender: FDA-Public Use
  Company Number: US-AMGEN-US362560

PATIENT
  Sex: Female

DRUGS (3)
  1. NPLATE [Suspect]
     Indication: IDIOPATHIC THROMBOCYTOPENIC PURPURA
     Route: 058
     Dates: start: 20080924, end: 20081224
  2. IMMUNOGLOBULINS [Concomitant]
     Route: 042
     Dates: start: 20021108
  3. DANAZOL [Concomitant]
     Route: 065
     Dates: start: 20080820

REACTIONS (1)
  - THERAPEUTIC RESPONSE DECREASED [None]
